FAERS Safety Report 7225862-4 (Version None)
Quarter: 2011Q1

REPORT INFORMATION
  Report Type: 
  Country: None (occurrence: None)
  Receive Date: 20110113
  Receipt Date: 20110104
  Transmission Date: 20110831
  Serious: Yes (Other)
  Sender: FDA-Public Use
  Company Number: GR-BAXTER-2011BH000638

PATIENT
  Age: 64 Year
  Sex: Male

DRUGS (5)
  1. CORTICOSTEROIDS [Concomitant]
     Indication: WEGENER'S GRANULOMATOSIS
     Route: 065
  2. MYCOPHENOLATE MOFETIL [Concomitant]
     Indication: WEGENER'S GRANULOMATOSIS
     Route: 065
  3. AZATHIOPRINE [Concomitant]
     Indication: WEGENER'S GRANULOMATOSIS
     Route: 065
  4. CYCLOPHOSPHAMIDE [Suspect]
     Indication: WEGENER'S GRANULOMATOSIS
     Route: 042
  5. CYCLOPHOSPHAMIDE [Suspect]
     Route: 048

REACTIONS (2)
  - ACUTE MYELOMONOCYTIC LEUKAEMIA [None]
  - MYELODYSPLASTIC SYNDROME [None]
